FAERS Safety Report 12272803 (Version 1)
Quarter: 2016Q2

REPORT INFORMATION
  Report Type: Spontaneous
  Country: US (occurrence: US)
  Receive Date: 20160415
  Receipt Date: 20160415
  Transmission Date: 20160815
  Serious: No
  Sender: FDA-Public Use
  Company Number: US-ASTRAZENECA-2016SE26157

PATIENT
  Sex: Female
  Weight: 48.1 kg

DRUGS (1)
  1. RHINOCORT AQUA [Suspect]
     Active Substance: BUDESONIDE
     Indication: RHINITIS ALLERGIC
     Route: 045

REACTIONS (5)
  - Intentional product misuse [Unknown]
  - Dizziness [Unknown]
  - Respiratory tract congestion [Unknown]
  - Drug dose omission [Unknown]
  - Lacrimation increased [Unknown]
